FAERS Safety Report 6199290-7 (Version None)
Quarter: 2009Q2

REPORT INFORMATION
  Report Type: 
  Country: None (occurrence: None)
  Receive Date: 20090519
  Receipt Date: 20090519
  Transmission Date: 20091009
  Serious: Yes (Other)
  Sender: FDA-Public Use
  Company Number: None

PATIENT
  Age: 27 Year
  Sex: Female
  Weight: 131.5431 kg

DRUGS (2)
  1. SUBOXONE [Suspect]
     Indication: DRUG WITHDRAWAL MAINTENANCE THERAPY
     Dosage: 4 MG TWO DOSES SL
     Route: 060
     Dates: start: 20090515, end: 20090515
  2. SUBOXONE [Suspect]
     Indication: PAIN
     Dosage: 4 MG TWO DOSES SL
     Route: 060
     Dates: start: 20090515, end: 20090515

REACTIONS (3)
  - DRUG WITHDRAWAL SYNDROME [None]
  - NAUSEA [None]
  - YAWNING [None]
